FAERS Safety Report 5542322-7 (Version None)
Quarter: 2007Q4

REPORT INFORMATION
  Report Type: 
  Country: None (occurrence: None)
  Receive Date: 20071210
  Receipt Date: 20071107
  Transmission Date: 20080405
  Serious: Yes (Other)
  Sender: FDA-Public Use
  Company Number: JP-ASTRAZENECA-2007AP04239

PATIENT
  Age: 59 Year
  Sex: Male
  Weight: 59 kg

DRUGS (7)
  1. MEROPENEM [Suspect]
     Indication: SEPSIS
     Route: 042
     Dates: start: 20070502, end: 20070507
  2. AMBISOME [Suspect]
     Indication: SYSTEMIC MYCOSIS
     Route: 042
     Dates: start: 20070507, end: 20070511
  3. ITRIZOLE [Suspect]
     Indication: SYSTEMIC MYCOSIS
     Route: 042
     Dates: start: 20070502, end: 20070506
  4. MODACIN [Suspect]
     Indication: SEPSIS
     Route: 042
     Dates: start: 20070507, end: 20070514
  5. GAMIMUNE N 5% [Concomitant]
     Indication: IMMUNODEFICIENCY COMMON VARIABLE
     Route: 042
     Dates: start: 20070411
  6. OMEPRAL [Concomitant]
     Indication: GASTRIC ULCER
     Route: 042
     Dates: start: 20070420
  7. PREDONINE [Concomitant]
     Indication: GRAFT VERSUS HOST DISEASE
     Route: 042
     Dates: start: 20070503, end: 20070507

REACTIONS (2)
  - HEPATIC FUNCTION ABNORMAL [None]
  - RENAL IMPAIRMENT [None]
